FAERS Safety Report 25329512 (Version 1)
Quarter: 2025Q2

REPORT INFORMATION
  Report Type: Spontaneous
  Country: US (occurrence: US)
  Receive Date: 20250519
  Receipt Date: 20250519
  Transmission Date: 20250717
  Serious: No
  Sender: TEVA
  Company Number: US-TEVA-VS-3330553

PATIENT
  Age: 54 Year
  Sex: Female

DRUGS (3)
  1. MIMVEY [Suspect]
     Active Substance: ESTRADIOL\NORETHINDRONE ACETATE
     Indication: Hot flush
     Route: 048
     Dates: start: 202503
  2. LINZESS [Concomitant]
     Active Substance: LINACLOTIDE
     Indication: Gastrointestinal disorder
     Route: 065
  3. PROZAC [Concomitant]
     Active Substance: FLUOXETINE HYDROCHLORIDE
     Indication: Affective disorder
     Route: 065

REACTIONS (3)
  - Weight increased [Unknown]
  - Breast tenderness [Unknown]
  - Breast pain [Unknown]

NARRATIVE: CASE EVENT DATE: 20250101
